FAERS Safety Report 22029410 (Version 2)
Quarter: 2023Q1

REPORT INFORMATION
  Report Type: Spontaneous
  Country: JP (occurrence: JP)
  Receive Date: 20230223
  Receipt Date: 20230316
  Transmission Date: 20230418
  Serious: No
  Sender: FDA-Public Use
  Company Number: None

PATIENT
  Sex: Female

DRUGS (1)
  1. BOTOX [Suspect]
     Active Substance: ONABOTULINUMTOXINA
     Indication: Facial spasm
     Dosage: UNK UNK, SINGLE
     Dates: start: 20230204, end: 20230204

REACTIONS (3)
  - Eye swelling [Recovering/Resolving]
  - Injection site bruising [Recovering/Resolving]
  - Eyelid function disorder [Recovering/Resolving]

NARRATIVE: CASE EVENT DATE: 20230206
